FAERS Safety Report 13052429 (Version 1)
Quarter: 2016Q4

REPORT INFORMATION
  Report Type: Spontaneous
  Country: US (occurrence: US)
  Receive Date: 20161221
  Receipt Date: 20161221
  Transmission Date: 20170207
  Serious: No
  Sender: FDA-Public Use
  Company Number: US-ANTIGEN LABORATORIES, INC.-1061144

PATIENT
  Age: 46 Year
  Sex: Male

DRUGS (28)
  1. MOLDS, RUSTS AND SMUTS, GS FUSARIUM MIX [Suspect]
     Active Substance: GIBBERELLA FUJIKUROI\HAEMATONECTRIA HAEMATOCOCCA
     Route: 058
  2. WHITE HICKORY [Suspect]
     Active Substance: CARYA TOMENTOSA POLLEN
     Route: 058
  3. POLLENS - WEEDS AND GARDEN PLANTS, LAMB QUARTERS CHENOPODIUM ALBUM [Suspect]
     Active Substance: CHENOPODIUM ALBUM POLLEN
     Route: 058
  4. STANDARDIZED MITE DERMATOPHAGOIDES FARINAE [Suspect]
     Active Substance: DERMATOPHAGOIDES FARINAE
     Route: 058
  5. POLLENS - TREES, ELM, AMERICAN ULMUS AMERICANA [Suspect]
     Active Substance: ULMUS AMERICANA POLLEN
     Route: 058
  6. POLLENS - WEEDS AND GARDEN PLANTS, RAGWEED, GIANT AMBROSIA TRIFIDA [Suspect]
     Active Substance: AMBROSIA TRIFIDA POLLEN
     Route: 058
  7. INSECTS (WHOLE BODY) COCKROACH, AMERICAN PERIPLANETA AMERICANA [Suspect]
     Active Substance: PERIPLANETA AMERICANA
     Route: 058
  8. STANDARDIZED TIMOTHY GRASS [Suspect]
     Active Substance: PHLEUM PRATENSE POLLEN
     Route: 058
  9. POLLENS - WEEDS AND GARDEN PLANTS, PLANTAIN, ENGLISH PLANTAGO LANCEOLATA [Suspect]
     Active Substance: PLANTAGO LANCEOLATA POLLEN
     Route: 058
  10. POLLENS - WEEDS AND GARDEN PLANTS, SAGEBRUSH, MUGWORT ARTEMISIA VULGARIS [Suspect]
     Active Substance: ARTEMISIA VULGARIS POLLEN
     Route: 058
  11. POLLENS - WEEDS AND GARDEN PLANTS, SORREL, SHEEP RUMEX ACETOSELLA [Suspect]
     Active Substance: RUMEX ACETOSELLA POLLEN
     Route: 058
  12. STANDARDIZED MITE, DERMATOPHAGOIDES PTERONYSSINUS [Suspect]
     Active Substance: DERMATOPHAGOIDES PTERONYSSINUS
     Route: 058
  13. STANDARDIZED GRASS POLLEN, BERMUDA GRASS [Suspect]
     Active Substance: CYNODON DACTYLON POLLEN
     Route: 058
  14. POLLENS - GRASSES, BAHIA GRASS PASPALUM NOTATUM [Suspect]
     Active Substance: PASPALUM NOTATUM POLLEN
     Route: 058
  15. POLLENS - TREES, WALNUT, BLACK JUGLANS NIGRA [Suspect]
     Active Substance: JUGLANS NIGRA POLLEN
     Route: 058
  16. POLLENS - TREES, CEDAR, MOUNTAIN JUNIPERUS ASHEI [Suspect]
     Active Substance: JUNIPERUS ASHEI POLLEN
     Route: 058
  17. POLLENS - WEEDS AND GARDEN PLANTS, SHORT RAGWEED, AMBROSIA ARTEMISIIFOLIA [Suspect]
     Active Substance: AMBROSIA ARTEMISIIFOLIA POLLEN
     Route: 058
  18. POLLENS - TREES, WILLOW, BLACK SALIX NIGRA [Suspect]
     Active Substance: SALIX NIGRA POLLEN
     Route: 058
  19. POLLENS - WEEDS AND GARDEN PLANTS, PIGWEED, ROUGH REDROOT AMARANTHUS RETROFLEXUS [Suspect]
     Active Substance: AMARANTHUS RETROFLEXUS POLLEN
     Route: 058
  20. STANDARDIZED MITE DERMATOPHAGOIDES FARINAE [Suspect]
     Active Substance: DERMATOPHAGOIDES FARINAE
     Route: 057
  21. STANDARDIZED CAT HAIR [Suspect]
     Active Substance: FELIS CATUS HAIR
     Route: 058
  22. MOLDS, RUSTS AND SMUTS, MUCOR CIRCINELLOIDES F CIRCINELLOIDES [Suspect]
     Active Substance: MUCOR CIRCINELLOIDES F. LUSITANICUS
     Route: 058
  23. MOLDS, RUSTS AND SMUTS, PENICILLIUM NOTATUM [Suspect]
     Active Substance: PENICILLIUM CHRYSOGENUM VAR. CHRYSOGENUM
     Route: 058
  24. POLLENS - TREES, ASH, WHITE FRAXINUS AMERICANA [Suspect]
     Active Substance: FRAXINUS AMERICANA POLLEN
     Route: 058
  25. WHITE OAK [Suspect]
     Active Substance: QUERCUS ALBA POLLEN
     Route: 058
  26. MOLDS, RUSTS AND SMUTS, ALTERNARIA TENUIS (ALTERNATA) [Suspect]
     Active Substance: ALTERNARIA ALTERNATA
     Route: 058
  27. GRAIN SMUT MIXTURE [Suspect]
     Active Substance: USTILAGO AVENAE\USTILAGO MAYDIS\USTILAGO NUDA HORDEI\USTILAGO TRITICI
     Route: 058
  28. POLLENS - TREES, BOX ELDER, ACER NEGUNDO [Suspect]
     Active Substance: ACER NEGUNDO POLLEN
     Route: 058

REACTIONS (1)
  - Administration site pain [Not Recovered/Not Resolved]

NARRATIVE: CASE EVENT DATE: 20160504
